FAERS Safety Report 6182476-5 (Version None)
Quarter: 2009Q2

REPORT INFORMATION
  Report Type: 
  Country: None (occurrence: None)
  Receive Date: 20090507
  Receipt Date: 20090427
  Transmission Date: 20091009
  Serious: Yes (Other)
  Sender: FDA-Public Use
  Company Number: FI-ROCHE-629910

PATIENT
  Age: 49 Year
  Sex: Female

DRUGS (3)
  1. KYTRIL [Suspect]
     Indication: DRUG USE FOR UNKNOWN INDICATION
     Dosage: REPORTED AS ACCORDING TO NEED.
     Route: 065
  2. XELODA [Suspect]
     Indication: COLORECTAL CANCER
     Dosage: FREQUENCY : 5+ 5/DAY
     Route: 048
     Dates: start: 20090120, end: 20090122
  3. PRIMPERAN [Concomitant]
     Dosage: REPORTED AS ACCORDING TO NEED.

REACTIONS (3)
  - ANGINA PECTORIS [None]
  - NAUSEA [None]
  - VOMITING [None]
